FAERS Safety Report 5376548-2 (Version None)
Quarter: 2007Q2

REPORT INFORMATION
  Report Type: 
  Country: None (occurrence: None)
  Receive Date: 20070629
  Receipt Date: 20070619
  Transmission Date: 20071010
  Serious: Yes (Other)
  Sender: FDA-Public Use
  Company Number: 2007RL000284

PATIENT
  Age: 69 Year
  Sex: Male
  Weight: 70.0354 kg

DRUGS (1)
  1. ISRADIPINE [Suspect]
     Indication: HYPERTENSION
     Dosage: 2.5 MG;PO
     Route: 048

REACTIONS (3)
  - AGITATION [None]
  - NERVOUSNESS [None]
  - RENAL CELL CARCINOMA STAGE UNSPECIFIED [None]
